FAERS Safety Report 4742878-8 (Version None)
Quarter: 2005Q3

REPORT INFORMATION
  Report Type: 
  Country: None (occurrence: None)
  Receive Date: 20050810
  Receipt Date: 20050810
  Transmission Date: 20060218
  Serious: Yes (Life-Threatening, Hospitalization)
  Sender: FDA-Public Use
  Company Number: None

PATIENT
  Age: 56 Year
  Sex: Female
  Weight: 61.2356 kg

DRUGS (3)
  1. KLONOPIN [Suspect]
     Indication: FIBROMYALGIA
     Dosage: 2MG   1X/DAY   ORAL
     Route: 048
     Dates: start: 20030102, end: 20050809
  2. KLONOPIN [Suspect]
     Indication: INSOMNIA
     Dosage: 2MG   1X/DAY   ORAL
     Route: 048
     Dates: start: 20030102, end: 20050809
  3. KLONOPIN [Suspect]
     Indication: MYALGIA
     Dosage: 2MG   1X/DAY   ORAL
     Route: 048
     Dates: start: 20030102, end: 20050809

REACTIONS (5)
  - DRUG DEPENDENCE [None]
  - DRUG WITHDRAWAL SYNDROME [None]
  - MALAISE [None]
  - NUCLEAR MAGNETIC RESONANCE IMAGING BRAIN ABNORMAL [None]
  - TREMOR [None]
